FAERS Safety Report 11172299 (Version 1)
Quarter: 2015Q2

REPORT INFORMATION
  Report Type: Spontaneous
  Country: TR (occurrence: TR)
  Receive Date: 20150608
  Receipt Date: 20150608
  Transmission Date: 20150821
  Serious: Yes (Life-Threatening)
  Sender: FDA-Public Use
  Company Number: TR-SA-2015SA076739

PATIENT
  Age: 54 Year
  Weight: 65 kg

DRUGS (3)
  1. ALTUZAN [Concomitant]
     Active Substance: BEVACIZUMAB
     Dosage: IN 1 HOUR
     Route: 042
  2. CALCIUM FOLINATE [Concomitant]
     Active Substance: LEUCOVORIN CALCIUM
     Dosage: IV IN 2 HOURS
     Route: 042
  3. ELOXATIN [Suspect]
     Active Substance: OXALIPLATIN
     Route: 042

REACTIONS (2)
  - Epilepsy [Recovered/Resolved]
  - Hypersensitivity [Recovered/Resolved]

NARRATIVE: CASE EVENT DATE: 20150521
